FAERS Safety Report 25147633 (Version 1)
Quarter: 2025Q2

REPORT INFORMATION
  Report Type: Spontaneous
  Country: CA (occurrence: CA)
  Receive Date: 20250402
  Receipt Date: 20250402
  Transmission Date: 20250717
  Serious: Yes (Other)
  Sender: ORGANON
  Company Number: CA-ORGANON-O2503CAN003017

PATIENT
  Age: 40 Year
  Sex: Female

DRUGS (4)
  1. SINGULAIR [Suspect]
     Active Substance: MONTELUKAST SODIUM
     Indication: Urticaria
     Dosage: 20 MILLIGRAM, QD (EVERY 1 DAYS) (DOSAGE FORM: NOT SPECIFIED)
     Route: 065
  2. DIPHENHYDRAMINE [Suspect]
     Active Substance: DIPHENHYDRAMINE
     Indication: Urticaria
     Dosage: 50 MILLIGRAM, Q8H (1 EVERY 8 HOURS)
     Route: 065
  3. KETOTIFEN [Suspect]
     Active Substance: KETOTIFEN
     Indication: Urticaria
     Dosage: 4 MILLIGRAM, Q12H (1 EVERY 12 HOURS)
     Route: 065
  4. RANITIDINE [Suspect]
     Active Substance: RANITIDINE
     Indication: Urticaria
     Dosage: 150 MILLIGRAM, QD (EVERY 1 DAYS)
     Route: 065

REACTIONS (2)
  - Anaphylactic reaction [Unknown]
  - Schnitzler^s syndrome [Unknown]
